FAERS Safety Report 6611990-0 (Version None)
Quarter: 2010Q1

REPORT INFORMATION
  Report Type: 
  Country: None (occurrence: None)
  Receive Date: 20100303
  Receipt Date: 20100222
  Transmission Date: 20100710
  Serious: Yes (Other)
  Sender: FDA-Public Use
  Company Number: GXKR2010IL02157

PATIENT
  Age: 74 Year
  Sex: Male

DRUGS (1)
  1. AMIODARONE (NGX) [Suspect]
     Indication: ATRIAL FIBRILLATION
     Dosage: 200-400 MG/DAY
     Route: 065

REACTIONS (8)
  - BASAL CELL CARCINOMA [None]
  - MALIGNANT MELANOMA IN SITU [None]
  - PHOTOSENSITIVITY REACTION [None]
  - PIGMENTATION DISORDER [None]
  - RASH [None]
  - SKIN DISCOLOURATION [None]
  - SKIN LESION EXCISION [None]
  - SKIN NEOPLASM EXCISION [None]
